FAERS Safety Report 13782061 (Version 1)
Quarter: 2017Q3

REPORT INFORMATION
  Report Type: Spontaneous
  Country: US (occurrence: US)
  Receive Date: 20170724
  Receipt Date: 20170724
  Transmission Date: 20171127
  Serious: Yes (Other)
  Sender: FDA-Public Use
  Company Number: None

PATIENT
  Age: 64 Year
  Sex: Female

DRUGS (6)
  1. SIMVASTATIN. [Concomitant]
     Active Substance: SIMVASTATIN
  2. GOTU KOLA [Concomitant]
     Active Substance: GOTU KOLA
  3. SULFASALAZINE 500 MG [Suspect]
     Active Substance: SULFASALAZINE
     Indication: POLYARTHRITIS
     Dosage: ?          OTHER STRENGTH:MG;QUANTITY:2 TABLET(S);?
     Route: 048
     Dates: start: 20170721, end: 20170722
  4. SYNTHROID [Concomitant]
     Active Substance: LEVOTHYROXINE SODIUM
  5. PHENTERMINE. [Concomitant]
     Active Substance: PHENTERMINE
  6. MERIVA [Concomitant]

REACTIONS (3)
  - Gastrointestinal pain [None]
  - Diarrhoea haemorrhagic [None]
  - Diarrhoea [None]

NARRATIVE: CASE EVENT DATE: 20170722
